FAERS Safety Report 10073796 (Version 2)
Quarter: 2014Q2

REPORT INFORMATION
  Report Type: Spontaneous
  Country: DE (occurrence: IT)
  Receive Date: 20140411
  Receipt Date: 20140418
  Transmission Date: 20141212
  Serious: Yes (Other)
  Sender: FDA-Public Use
  Company Number: IT-FRI-1000066260

PATIENT
  Age: 66 Year
  Sex: Female

DRUGS (8)
  1. MEMANTINE [Suspect]
     Dosage: 20 MG
     Route: 048
  2. CYMBALTA [Suspect]
     Dosage: 120 MG
     Route: 048
     Dates: start: 20130927, end: 20130929
  3. CYMBALTA [Suspect]
     Dosage: 60 MG
     Route: 048
  4. SEROQUEL [Suspect]
     Dosage: 125 MG
     Route: 048
  5. TOPOMAX [Suspect]
     Dosage: 25 AND 37.5 MG
     Route: 048
  6. EXELON [Suspect]
     Route: 048
  7. CARIOASPIRIN [Suspect]
     Dosage: 100 MG
     Route: 048
  8. TRIATEC [Suspect]
     Indication: HYPERTENSION

REACTIONS (18)
  - Psychomotor hyperactivity [Unknown]
  - Agnosia [Unknown]
  - Dementia Alzheimer^s type [Unknown]
  - Anxiety [Unknown]
  - Agitation [Unknown]
  - Convulsion [Unknown]
  - Hallucination [Unknown]
  - Convulsion [Unknown]
  - Confusional state [Unknown]
  - Partial seizures [Unknown]
  - Tonic convulsion [Unknown]
  - Psychomotor hyperactivity [Unknown]
  - Anxiety [Unknown]
  - Agnosia [Unknown]
  - Psychotic behaviour [Unknown]
  - Clonus [Unknown]
  - Dysstasia [Unknown]
  - Drug interaction [Unknown]
